FAERS Safety Report 6668497-4 (Version None)
Quarter: 2010Q2

REPORT INFORMATION
  Report Type: 
  Country: None (occurrence: None)
  Receive Date: 20100401
  Receipt Date: 20100324
  Transmission Date: 20101027
  Serious: Yes (Life-Threatening, Other)
  Sender: FDA-Public Use
  Company Number: SPV1-2010-00229

PATIENT
  Age: 70 Year
  Sex: Female

DRUGS (21)
  1. FOSRENOL [Suspect]
     Indication: HYPERPHOSPHATAEMIA
     Dosage: 750 MG DAILY, ORAL 750 MG DAILY, ORAL
     Route: 048
     Dates: start: 20090607, end: 20091128
  2. FOSRENOL [Suspect]
     Indication: HYPERPHOSPHATAEMIA
     Dosage: 750 MG DAILY, ORAL 750 MG DAILY, ORAL
     Route: 048
     Dates: start: 20091202, end: 20091207
  3. DIPRIVAN [Concomitant]
  4. ROCURONIUM BROMIDE [Concomitant]
  5. ULTIVA [Concomitant]
  6. FENTANYL-100 [Concomitant]
  7. ANAPEINE (ROPIVACAINE HYDROCHLORIDE) [Concomitant]
  8. XYLOCAINE [Concomitant]
  9. JUVELA N (TOCOPHERYL NICOTINATE) [Concomitant]
  10. LASIX [Concomitant]
  11. GASMOTIN (MOSAPRIDE CITRATE) [Concomitant]
  12. RABEPRAZOLE SODIUM [Concomitant]
  13. WARFARIN SODIUM [Concomitant]
  14. FLUMARIN /00963302/ (FLOMOXEF SODIUM) [Concomitant]
  15. ZOLPIDEM TARTRATE [Concomitant]
  16. CALTAN (CALCIUM CARBONATE) [Concomitant]
  17. RISUMIC (AMEZINIUM METILSULFATE) [Concomitant]
  18. LEBENIN (LACTOBACILLUS ACIDOPHILUS, LACTOBACILLUS BIFIDUS, LYOPHILIZED [Concomitant]
  19. CEFMETAZON (CEFMETAZOLE SODIUM) [Concomitant]
  20. HEPARIN [Concomitant]
  21. RED BLOOD CELLS [Concomitant]

REACTIONS (13)
  - BLOOD UREA DECREASED [None]
  - BLOOD UREA INCREASED [None]
  - COLONIC STENOSIS [None]
  - DRUG ADMINISTRATION ERROR [None]
  - HAEMATOCRIT DECREASED [None]
  - HAEMOGLOBIN DECREASED [None]
  - ILEUS [None]
  - LARGE INTESTINAL STRICTURE [None]
  - MELAENA [None]
  - PERITONEAL DISORDER [None]
  - PROTHROMBIN TIME SHORTENED [None]
  - SMALL INTESTINAL PERFORATION [None]
  - WHITE BLOOD CELL COUNT INCREASED [None]
